FAERS Safety Report 8353997-1 (Version None)
Quarter: 2012Q2

REPORT INFORMATION
  Report Type: 
  Country: None (occurrence: None)
  Receive Date: 20120511
  Receipt Date: 20120504
  Transmission Date: 20120825
  Serious: Yes (Other)
  Sender: FDA-Public Use
  Company Number: US-ASTRAZENECA-2012SE29012

PATIENT
  Age: 53 Year
  Sex: Female
  Weight: 70.3 kg

DRUGS (4)
  1. CENTRUM SENIOR [Concomitant]
     Indication: OSTEOARTHRITIS
     Dosage: DAILY
     Route: 048
     Dates: start: 20080101
  2. PRILOSEC [Suspect]
     Indication: GASTROOESOPHAGEAL REFLUX DISEASE
     Route: 048
     Dates: start: 20020101
  3. VICODIN [Concomitant]
     Indication: OSTEOARTHRITIS
     Dates: start: 20070101
  4. LYRICA [Concomitant]
     Indication: FIBROMYALGIA
     Dates: start: 20110101

REACTIONS (3)
  - BONE DENSITY DECREASED [None]
  - CONDITION AGGRAVATED [None]
  - BONE DISORDER [None]
